FAERS Safety Report 16314095 (Version 1)
Quarter: 2019Q2

REPORT INFORMATION
  Report Type: Report from Study
  Country: CA (occurrence: CA)
  Receive Date: 20190515
  Receipt Date: 20190515
  Transmission Date: 20190711
  Serious: Yes (Other)
  Sender: FDA-Public Use
  Company Number: CA-GLAXOSMITHKLINE-CA2019GSK077646

PATIENT
  Sex: Male

DRUGS (8)
  1. INCRUSE ELLIPTA [Suspect]
     Active Substance: UMECLIDINIUM BROMIDE
     Indication: PRODUCT USED FOR UNKNOWN INDICATION
     Dosage: UNK
  2. PNEUMOVAX 23 [Suspect]
     Active Substance: PNEUMOCOCCAL VACCINE, POLYVALENT 23
     Indication: PRODUCT USED FOR UNKNOWN INDICATION
     Dosage: UNK
  3. SINGULAIR [Suspect]
     Active Substance: MONTELUKAST SODIUM
     Indication: PRODUCT USED FOR UNKNOWN INDICATION
     Dosage: UNK, 10MG
  4. ARNUITY ELLIPTA [Suspect]
     Active Substance: FLUTICASONE FUROATE
     Indication: PRODUCT USED FOR UNKNOWN INDICATION
     Dosage: UNK, 100MCG
     Route: 055
  5. FLUTICASONE FUROATE + VILANTEROL TRIFENATATE [Suspect]
     Active Substance: FLUTICASONE FUROATE\VILANTEROL TRIFENATATE
     Indication: PRODUCT USED FOR UNKNOWN INDICATION
     Dosage: UNK, 200-25MCG
     Route: 055
  6. VENTOLIN HFA [Suspect]
     Active Substance: ALBUTEROL SULFATE
     Indication: PRODUCT USED FOR UNKNOWN INDICATION
     Dosage: UNK
  7. GUAIFENESIN. [Suspect]
     Active Substance: GUAIFENESIN
     Dosage: UNK
     Route: 048
  8. CLARITIN ALLERGY + SINUS [Suspect]
     Active Substance: LORATADINE\PSEUDOEPHEDRINE SULFATE
     Indication: PRODUCT USED FOR UNKNOWN INDICATION
     Dosage: UNK

REACTIONS (22)
  - Bronchiectasis [Unknown]
  - Drug ineffective [Unknown]
  - Sensitisation [Unknown]
  - Rales [Unknown]
  - Malaise [Unknown]
  - Chest discomfort [Unknown]
  - Bacterial disease carrier [Unknown]
  - Dyspnoea [Unknown]
  - Fatigue [Unknown]
  - Dry mouth [Unknown]
  - Secretion discharge [Unknown]
  - Sinusitis [Unknown]
  - Wheezing [Unknown]
  - Sputum purulent [Unknown]
  - Cough [Unknown]
  - Blood count abnormal [Unknown]
  - Pulmonary function test abnormal [Unknown]
  - Rhonchi [Unknown]
  - Asthma [Unknown]
  - Sleep disorder [Unknown]
  - Respiratory tract infection [Unknown]
  - Multiple allergies [Unknown]
